FAERS Safety Report 9322406 (Version 1)
Quarter: 2013Q2

REPORT INFORMATION
  Report Type: Report from Study
  Country: DE (occurrence: DE)
  Receive Date: 20130531
  Receipt Date: 20130531
  Transmission Date: 20140414
  Serious: Yes (Hospitalization)
  Sender: FDA-Public Use
  Company Number: DE-ABBOTT-13P-062-1043262-00

PATIENT
  Sex: Male

DRUGS (1)
  1. HUMIRA PEN [Suspect]
     Indication: CROHN^S DISEASE
     Dosage: 40 MG EOW
     Route: 058
     Dates: start: 20100101, end: 20130102

REACTIONS (1)
  - Ileal stenosis [Recovering/Resolving]
